FAERS Safety Report 5113476-1 (Version None)
Quarter: 2006Q3

REPORT INFORMATION
  Report Type: 
  Country: None (occurrence: None)
  Receive Date: 20060920
  Receipt Date: 20000503
  Transmission Date: 20061208
  Serious: Yes (Hospitalization)
  Sender: FDA-Public Use
  Company Number: STI-2006-00187

PATIENT
  Age: 13 Year
  Sex: Female

DRUGS (3)
  1. 222A STIEMYCIN 2.0% (ERYTHROMYCIN TOPICAL) (ERYTHROMYCIN) (SOLUTION) [Suspect]
     Indication: ACNE
     Dosage: TOPICAL
     Route: 061
     Dates: start: 19990301, end: 20000301
  2. AMITRIPTYLINE (AMITRIPTYLINE) (30 MG) [Concomitant]
  3. THYROXINE (LEVOTHYROXINE SODIUM) (100 UG) [Concomitant]

REACTIONS (1)
  - PHOTOSENSITIVITY REACTION [None]
